FAERS Safety Report 23798731 (Version 1)
Quarter: 2024Q2

REPORT INFORMATION
  Report Type: Spontaneous
  Country: US (occurrence: None)
  Receive Date: 20240427
  Receipt Date: 20240427
  Transmission Date: 20240716
  Serious: Yes (Life-Threatening, Hospitalization, Disabling, Other)
  Sender: FDA-Public Use
  Company Number: None

PATIENT
  Age: 81 Year
  Sex: Female
  Weight: 48.15 kg

DRUGS (1)
  1. HERBALS\MITRAGYNINE [Suspect]
     Active Substance: HERBALS\MITRAGYNINE
     Indication: Product used for unknown indication
     Dates: start: 20240102, end: 20240125

REACTIONS (7)
  - Therapy cessation [None]
  - Delirium [None]
  - Pain [None]
  - Mental status changes [None]
  - Sleep deficit [None]
  - Psychotic disorder [None]
  - Seizure [None]

NARRATIVE: CASE EVENT DATE: 20240125
